FAERS Safety Report 23329672 (Version 1)
Quarter: 2023Q4

REPORT INFORMATION
  Report Type: Spontaneous
  Country: US (occurrence: US)
  Receive Date: 20231222
  Receipt Date: 20231222
  Transmission Date: 20240110
  Serious: Yes (Death, Hospitalization, Other)
  Sender: FDA-Public Use
  Company Number: US-ORGANON-O2312USA001777

PATIENT
  Age: 32 Year
  Sex: Male

DRUGS (16)
  1. ZETIA [Suspect]
     Active Substance: EZETIMIBE
     Dosage: ROUTE REPORTED AS INGST + ASPIR
  2. ACETAMINOPHEN [Suspect]
     Active Substance: ACETAMINOPHEN
     Dosage: ROUTE REPORTED AS INGST + ASPIR
  3. BACLOFEN [Suspect]
     Active Substance: BACLOFEN
     Dosage: ROUTE REPORTED AS INGST + ASPIR
  4. DOXEPIN [Suspect]
     Active Substance: DOXEPIN
     Dosage: ROUTE REPORTED AS INGST + ASPIR
  5. LAMOTRIGINE [Suspect]
     Active Substance: LAMOTRIGINE
     Dosage: ROUTE REPORTED AS INGST + ASPIR
  6. SERTRALINE [Suspect]
     Active Substance: SERTRALINE HYDROCHLORIDE
     Dosage: ROUTE REPORTED AS INGST + ASPIR
  7. PREGABALIN [Suspect]
     Active Substance: PREGABALIN
     Dosage: ROUTE REPORTED AS INGST + ASPIR
  8. TOPIRAMATE [Suspect]
     Active Substance: TOPIRAMATE
     Dosage: ROUTE REPORTED AS INGST + ASPIR
  9. HYDROCHLOROTHIAZIDE [Suspect]
     Active Substance: HYDROCHLOROTHIAZIDE
     Dosage: ROUTE REPORTED AS INGST + ASPIR
  10. DEUTETRABENAZINE [Suspect]
     Active Substance: DEUTETRABENAZINE
     Dosage: ROUTE REPORTED AS INGST + ASPIR
  11. CELECOXIB [Suspect]
     Active Substance: CELECOXIB
     Dosage: ROUTE REPORTED AS INGST + ASPIR
  12. OMEPRAZOLE [Suspect]
     Active Substance: OMEPRAZOLE
     Dosage: ROUTE REPORTED AS INGST + ASPIR
  13. LEVOCETIRIZINE [Suspect]
     Active Substance: LEVOCETIRIZINE
     Dosage: ROUTE REPORTED AS INGST + ASPIR
  14. DOCUSATE [Suspect]
     Active Substance: DOCUSATE
     Dosage: ROUTE REPORTED AS INGST + ASPIR
  15. MELATONIN [Suspect]
     Active Substance: MELATONIN
     Dosage: ROUTE REPORTED AS INGST + ASPIR
  16. VITAMIN D NOS [Suspect]
     Active Substance: VITAMIN D NOS
     Dosage: ROUTE REPORTED AS INGST + ASPIR

REACTIONS (1)
  - Suspected suicide [Fatal]
